FAERS Safety Report 8124892-8 (Version None)
Quarter: 2012Q1

REPORT INFORMATION
  Report Type: 
  Country: None (occurrence: None)
  Receive Date: 20120209
  Receipt Date: 20120128
  Transmission Date: 20120608
  Serious: Yes (Hospitalization)
  Sender: FDA-Public Use
  Company Number: US-PFIZER INC-2012023753

PATIENT
  Sex: Female
  Weight: 43.7 kg

DRUGS (13)
  1. PACLITAXEL [Suspect]
     Indication: NEOPLASM MALIGNANT
     Dosage: 280 MG, CYCLIC, EVERY 3 WEEKS
     Route: 042
     Dates: start: 20111230
  2. BEVACIZUMAB [Concomitant]
     Indication: NEOPLASM MALIGNANT
     Dosage: 705 MG, CYCLIC, EVERY 3 WEEKS
     Route: 042
     Dates: start: 20111230
  3. AMITRIPTYLINE [Concomitant]
     Indication: INSOMNIA
     Dosage: 25 MG, AT BEDTIME
     Route: 048
  4. KEPPRA [Concomitant]
     Indication: CONVULSION
     Dosage: 500 MG, 2X/DAY
     Route: 048
     Dates: start: 20110614
  5. CARBOPLATIN [Suspect]
     Indication: NEOPLASM MALIGNANT
     Dosage: 582 MG, CYCLIC, EVERY 3 WEEKS
     Route: 042
     Dates: start: 20111230
  6. RANITIDINE [Concomitant]
     Indication: ABDOMINAL DISCOMFORT
     Dosage: 150 MG, 1X/DAY
     Route: 048
     Dates: start: 20110719
  7. ONDANSETRON HCL [Concomitant]
     Indication: NAUSEA
     Dosage: 8 MG, UP TO 2 PER DAY
     Route: 048
     Dates: start: 20110719
  8. LORTAB [Concomitant]
     Indication: PAIN
     Dosage: 5/500, AS NEEDED
     Route: 048
     Dates: start: 20110614
  9. PROCHLORPERAZINE [Concomitant]
     Indication: NAUSEA
     Dosage: 5 MG, 1 PRIOR TO CHEMO/PRN
     Route: 048
     Dates: start: 20110719
  10. LOVENOX [Concomitant]
     Indication: ANTIPLATELET THERAPY
     Dosage: 50 MG, 2X/DAY
     Route: 058
     Dates: start: 20110614
  11. DEXAMETHASONE [Concomitant]
     Indication: PROPHYLAXIS
     Dosage: 4 MG, ONE TAB BID AFTER CHEMO, UNK
     Route: 048
     Dates: start: 20120101
  12. CRIZOTINIB [Suspect]
     Indication: NON-SMALL CELL LUNG CANCER
     Dosage: 200 MG, 2X/DAY
     Route: 048
     Dates: start: 20110727, end: 20111229
  13. XANAX [Concomitant]
     Indication: ANXIETY
     Dosage: 0.5 MG, TID/PRN
     Route: 048
     Dates: start: 20110719

REACTIONS (3)
  - FEBRILE NEUTROPENIA [None]
  - RENAL FAILURE ACUTE [None]
  - NEPHROLITHIASIS [None]
